FAERS Safety Report 4677604-4 (Version None)
Quarter: 2005Q2

REPORT INFORMATION
  Report Type: 
  Country: None (occurrence: None)
  Receive Date: 20050531
  Receipt Date: 20041026
  Transmission Date: 20051028
  Serious: Yes (Disabling)
  Sender: FDA-Public Use
  Company Number: US-ROCHE-384508

PATIENT
  Age: 17 Year
  Sex: Male
  Weight: 68.5 kg

DRUGS (4)
  1. ACCUTANE [Suspect]
     Indication: ACNE
     Route: 048
     Dates: start: 20011113, end: 20011214
  2. ACCUTANE [Suspect]
     Route: 048
     Dates: start: 20011214, end: 20020115
  3. MINOCYCLINE HCL [Concomitant]
     Indication: ACNE
     Route: 048
     Dates: start: 20011113
  4. DECADRON [Concomitant]
     Indication: ACNE
     Route: 048
     Dates: start: 20011113

REACTIONS (31)
  - ABDOMINAL PAIN [None]
  - ABSCESS INTESTINAL [None]
  - ACNE [None]
  - ALANINE AMINOTRANSFERASE INCREASED [None]
  - ANHEDONIA [None]
  - ANOREXIA [None]
  - ANXIETY [None]
  - ASPARTATE AMINOTRANSFERASE INCREASED [None]
  - BLOOD TRIGLYCERIDES INCREASED [None]
  - COLITIS [None]
  - COLITIS ULCERATIVE [None]
  - CONDITION AGGRAVATED [None]
  - DIARRHOEA [None]
  - EOSINOPHIL COUNT INCREASED [None]
  - FOLLICULITIS [None]
  - GASTROENTERITIS BACTERIAL [None]
  - GASTROINTESTINAL DISORDER [None]
  - HAEMATOCHEZIA [None]
  - HAEMATOCRIT DECREASED [None]
  - HAEMOGLOBIN DECREASED [None]
  - INFLAMMATORY BOWEL DISEASE [None]
  - INJURY [None]
  - INTESTINAL HAEMORRHAGE [None]
  - MULTI-ORGAN DISORDER [None]
  - MUSCLE SPASMS [None]
  - PAIN [None]
  - RECTAL HAEMORRHAGE [None]
  - RED BLOOD CELL SEDIMENTATION RATE INCREASED [None]
  - SCAR [None]
  - TREATMENT NONCOMPLIANCE [None]
  - WHITE BLOOD CELL COUNT INCREASED [None]
